FAERS Safety Report 13130153 (Version 1)
Quarter: 2017Q1

REPORT INFORMATION
  Report Type: Report from Study
  Country: US (occurrence: US)
  Receive Date: 20170119
  Receipt Date: 20170119
  Transmission Date: 20170428
  Serious: Yes (Life-Threatening, Other)
  Sender: FDA-Public Use
  Company Number: US-TEVA-729446USA

PATIENT
  Age: 42 Year
  Sex: Female

DRUGS (4)
  1. NORTREL 7/7/7 [Suspect]
     Active Substance: ETHINYL ESTRADIOL\NORETHINDRONE
     Dosage: 7X NET 750MICROGRAM/EE 35MICROGRAM
     Route: 048
  2. NORTREL 7/7/7 [Suspect]
     Active Substance: ETHINYL ESTRADIOL\NORETHINDRONE
     Dosage: 7X NET 1000MICROGRAM/EE 35MICROGRAM
     Route: 048
  3. NORTREL 7/7/7 [Suspect]
     Active Substance: ETHINYL ESTRADIOL\NORETHINDRONE
     Indication: CHEMICAL CONTRACEPTION
     Dosage: 7X NET 500MICROGRAM/EE 35MICROGRAM
     Route: 048
     Dates: start: 201306, end: 201503
  4. ASMANEX [Concomitant]
     Active Substance: MOMETASONE FUROATE

REACTIONS (3)
  - Cerebrovascular accident [Unknown]
  - Carotid artery dissection [Unknown]
  - Fibromuscular dysplasia [Unknown]

NARRATIVE: CASE EVENT DATE: 201503
